FAERS Safety Report 9582004 (Version 2)
Quarter: 2013Q4

REPORT INFORMATION
  Report Type: Spontaneous
  Country: US (occurrence: US)
  Receive Date: 20131002
  Receipt Date: 20131002
  Transmission Date: 20140711
  Serious: Yes (Hospitalization)
  Sender: FDA-Public Use
  Company Number: US-B.I. PHARMACEUTICALS,INC./RIDGEFIELD-2013-BI-12023BP

PATIENT
  Age: 76 Year
  Sex: Female
  Weight: 49.44 kg

DRUGS (8)
  1. PRADAXA [Suspect]
     Indication: ANTICOAGULANT THERAPY
     Dosage: 300 MG
     Route: 048
     Dates: start: 20110603, end: 20110603
  2. PRADAXA [Suspect]
     Indication: ATRIAL FIBRILLATION
  3. ASPIRIN [Concomitant]
     Indication: ANTICOAGULANT THERAPY
     Dosage: 81 MG
     Route: 048
  4. CALCIUM WITH VITAMIN D [Concomitant]
     Indication: SUPPLEMENTATION THERAPY
     Route: 048
  5. DIGOXIN [Concomitant]
     Indication: HEART RATE
     Dosage: 0.125 MG
     Route: 048
  6. DILTIAZEM [Concomitant]
     Indication: CARDIAC DISORDER
     Dosage: 360 MG
     Route: 048
  7. PHENYTOIN [Concomitant]
     Indication: INTRACRANIAL ANEURYSM
     Dosage: 100 MG
     Route: 048
  8. PHENYTOIN [Concomitant]
     Dosage: 50 MG
     Route: 048

REACTIONS (1)
  - Haematochezia [Recovered/Resolved]
